FAERS Safety Report 11936161 (Version 3)
Quarter: 2016Q1

REPORT INFORMATION
  Report Type: Report from Study
  Country: US (occurrence: US)
  Receive Date: 20160121
  Receipt Date: 20160229
  Transmission Date: 20160526
  Serious: Yes (Death, Hospitalization, Other)
  Sender: FDA-Public Use
  Company Number: US-AMGEN-USASL2015130900

PATIENT
  Age: 90 Year
  Sex: Male

DRUGS (1)
  1. KYPROLIS [Suspect]
     Active Substance: CARFILZOMIB
     Indication: PLASMA CELL MYELOMA
     Dosage: 3 WEEKS ON AND 1 WEEK OFF
     Route: 065
     Dates: start: 201511, end: 20160105

REACTIONS (8)
  - Epistaxis [Unknown]
  - Death [Fatal]
  - Cardiac valve disease [Unknown]
  - Atrial fibrillation [Unknown]
  - Cardiac failure congestive [Unknown]
  - Platelet count decreased [Recovered/Resolved]
  - Red blood cell count abnormal [Unknown]
  - Haemoglobin decreased [Recovering/Resolving]

NARRATIVE: CASE EVENT DATE: 2015
